FAERS Safety Report 21922013 (Version 1)
Quarter: 2023Q1

REPORT INFORMATION
  Report Type: Spontaneous
  Country: JP (occurrence: JP)
  Receive Date: 20230127
  Receipt Date: 20230127
  Transmission Date: 20230418
  Serious: Yes (Other)
  Sender: FDA-Public Use
  Company Number: JP-MSNLABS-2023MSNLIT00111

PATIENT

DRUGS (3)
  1. CAPECITABINE [Suspect]
     Active Substance: CAPECITABINE
     Indication: Gastric cancer
     Dosage: 3000 MG/BODY/DAY (DAYS 1-14, FOLLOWED BY 7 DAYS OF REST)
     Route: 048
  2. OXALIPLATIN [Suspect]
     Active Substance: OXALIPLATIN
     Indication: Gastric cancer
     Dosage: DAY 1
     Route: 042
  3. TRASTUZUMAB [Suspect]
     Active Substance: TRASTUZUMAB
     Indication: Gastric cancer
     Dosage: INITIAL DOSE 8 MG/KG, SUBSEQUENT DOSES 6 MG/KG, DAY 1
     Route: 042

REACTIONS (3)
  - Therapy partial responder [Unknown]
  - Decreased appetite [Unknown]
  - Diarrhoea [Unknown]
